FAERS Safety Report 8381505-8 (Version None)
Quarter: 2012Q2

REPORT INFORMATION
  Report Type: 
  Country: None (occurrence: None)
  Receive Date: 20120523
  Receipt Date: 20120518
  Transmission Date: 20120825
  Serious: No
  Sender: FDA-Public Use
  Company Number: US-PFIZER INC-2012083303

PATIENT
  Sex: Female
  Weight: 95.238 kg

DRUGS (4)
  1. TRILIPIX [Suspect]
     Indication: BLOOD CHOLESTEROL ABNORMAL
     Dosage: UNK
     Route: 048
  2. METFORMIN [Concomitant]
     Indication: DIABETES MELLITUS
     Dosage: 750 MG, 2X/DAY
  3. IBUPROFEN (ADVIL) [Suspect]
     Indication: ARTHRITIS
     Dosage: UNK, 4 CAPSULES AS NEEDED EITHER DAILY OR TWO TIMES A DAY
     Route: 048
  4. ACCUPRIL [Concomitant]
     Indication: HYPERTENSION
     Dosage: UNK
     Route: 048

REACTIONS (4)
  - POOR QUALITY DRUG ADMINISTERED [None]
  - HEADACHE [None]
  - BLOOD CHOLESTEROL INCREASED [None]
  - MYALGIA [None]
